FAERS Safety Report 12316219 (Version 1)
Quarter: 2016Q2

REPORT INFORMATION
  Report Type: Report from Study
  Country: US (occurrence: US)
  Receive Date: 20160428
  Receipt Date: 20160428
  Transmission Date: 20160815
  Serious: No
  Sender: FDA-Public Use
  Company Number: US-AMGEN-USASL2016050588

PATIENT
  Age: 73 Year
  Sex: Female

DRUGS (4)
  1. PREDNISONE. [Suspect]
     Active Substance: PREDNISONE
     Indication: MALAISE
     Dosage: UNK
     Route: 065
  2. ENBREL [Suspect]
     Active Substance: ETANERCEPT
     Indication: RHEUMATOID ARTHRITIS
     Dosage: 50 MG, QWK
     Route: 065
     Dates: start: 20151215
  3. PREDNISONE. [Suspect]
     Active Substance: PREDNISONE
     Indication: COUGH
  4. PREDNISONE. [Suspect]
     Active Substance: PREDNISONE
     Indication: NASOPHARYNGITIS

REACTIONS (5)
  - Nasopharyngitis [Unknown]
  - Cough [Recovering/Resolving]
  - Arthralgia [Unknown]
  - Blood glucose abnormal [Unknown]
  - Respiratory tract congestion [Unknown]

NARRATIVE: CASE EVENT DATE: 2016
